FAERS Safety Report 10446132 (Version 1)
Quarter: 2014Q3

REPORT INFORMATION
  Report Type: Spontaneous
  Country: GB (occurrence: GB)
  Receive Date: 20140910
  Receipt Date: 20140910
  Transmission Date: 20150326
  Serious: Yes (Disabling)
  Sender: FDA-Public Use
  Company Number: PHHY2014GB111366

PATIENT
  Age: 77 Year
  Sex: Female

DRUGS (2)
  1. ANALGESICS [Concomitant]
     Active Substance: UNSPECIFIED INGREDIENT
  2. CEFUROXIME SODIUM. [Suspect]
     Active Substance: CEFUROXIME SODIUM
     Indication: ANTIBIOTIC PROPHYLAXIS
     Dosage: DOSE GIVEN WAS 100MG/ML WITH A 0.1ML DOSE PROVIDING 10MG OF CEFUROXIME BEING ADMINISTERED
     Route: 031
     Dates: start: 20140726, end: 20140726

REACTIONS (3)
  - Visual impairment [Not Recovered/Not Resolved]
  - Wrong technique in drug usage process [Unknown]
  - Accidental overdose [Unknown]

NARRATIVE: CASE EVENT DATE: 20140727
